FAERS Safety Report 13389863 (Version 6)
Quarter: 2017Q3

REPORT INFORMATION
  Report Type: Spontaneous
  Country: US (occurrence: US)
  Receive Date: 20170331
  Receipt Date: 20170913
  Transmission Date: 20171127
  Serious: Yes (Hospitalization, Other)
  Sender: FDA-Public Use
  Company Number: US-JNJFOC-20170320844

PATIENT
  Age: 1 Year
  Sex: Female
  Weight: 9.07 kg

DRUGS (2)
  1. MOTRIN [Suspect]
     Active Substance: IBUPROFEN
     Route: 048
  2. MOTRIN [Suspect]
     Active Substance: IBUPROFEN
     Indication: PYREXIA
     Dosage: FIRST AT NOON AND SECOND AT AROUND 8 PM. 1.25 TO 1.875ML, TWO TIMES
     Route: 048
     Dates: start: 20170310, end: 20170310

REACTIONS (4)
  - Otitis media acute [Unknown]
  - Diarrhoea [Unknown]
  - Seizure [Recovered/Resolved]
  - Drug ineffective [Unknown]

NARRATIVE: CASE EVENT DATE: 20170310
